FAERS Safety Report 20085538 (Version 1)
Quarter: 2021Q4

REPORT INFORMATION
  Report Type: Spontaneous
  Country: US (occurrence: US)
  Receive Date: 20211118
  Receipt Date: 20211118
  Transmission Date: 20220303
  Serious: Yes (Death, Other)
  Sender: FDA-Public Use
  Company Number: US-GLAXOSMITHKLINE-US2021GSK237814

PATIENT
  Sex: Female

DRUGS (24)
  1. ZANTAC [Suspect]
     Active Substance: RANITIDINE HYDROCHLORIDE
     Indication: Crohn^s disease
     Dosage: 75 MG, QD
     Route: 065
     Dates: start: 199001, end: 201701
  2. ZANTAC [Suspect]
     Active Substance: RANITIDINE HYDROCHLORIDE
     Dosage: 75 MG, 1- 2 TIMES A DAY
     Route: 065
     Dates: start: 199001, end: 201701
  3. ZANTAC [Suspect]
     Active Substance: RANITIDINE HYDROCHLORIDE
     Dosage: 150 MG, QD
     Route: 065
     Dates: start: 199001, end: 201701
  4. ZANTAC [Suspect]
     Active Substance: RANITIDINE HYDROCHLORIDE
     Dosage: 150 MG, 1- 2 TIMES A DAY
     Route: 065
     Dates: start: 199001, end: 201701
  5. ZANTAC [Suspect]
     Active Substance: RANITIDINE HYDROCHLORIDE
     Indication: Crohn^s disease
     Dosage: 75 MG, QD
     Route: 065
     Dates: start: 199001, end: 201701
  6. ZANTAC [Suspect]
     Active Substance: RANITIDINE HYDROCHLORIDE
     Dosage: 75 MG, 1- 2 TIMES A DAY
     Route: 065
     Dates: start: 199001, end: 201701
  7. ZANTAC [Suspect]
     Active Substance: RANITIDINE HYDROCHLORIDE
     Dosage: 150 MG, QD
     Route: 065
     Dates: start: 199001, end: 201701
  8. ZANTAC [Suspect]
     Active Substance: RANITIDINE HYDROCHLORIDE
     Dosage: 150 MG, 1- 2 TIMES A DAY
     Route: 065
     Dates: start: 199001, end: 201701
  9. RANITIDINE HYDROCHLORIDE [Suspect]
     Active Substance: RANITIDINE HYDROCHLORIDE
     Indication: Crohn^s disease
     Dosage: 75 MG, QD
     Route: 065
     Dates: start: 199001, end: 201701
  10. RANITIDINE HYDROCHLORIDE [Suspect]
     Active Substance: RANITIDINE HYDROCHLORIDE
     Dosage: 75 MG, 1- 2 TIMES A DAY
     Route: 065
     Dates: start: 199001, end: 201701
  11. RANITIDINE HYDROCHLORIDE [Suspect]
     Active Substance: RANITIDINE HYDROCHLORIDE
     Dosage: 150 MG, QD
     Route: 065
     Dates: start: 199001, end: 201701
  12. RANITIDINE HYDROCHLORIDE [Suspect]
     Active Substance: RANITIDINE HYDROCHLORIDE
     Dosage: 150 MG, 1- 2 TIMES A DAY
     Route: 065
     Dates: start: 199001, end: 201701
  13. RANITIDINE HYDROCHLORIDE [Suspect]
     Active Substance: RANITIDINE HYDROCHLORIDE
     Indication: Crohn^s disease
     Dosage: 75 MG, QD
     Route: 065
     Dates: start: 199001, end: 201701
  14. RANITIDINE HYDROCHLORIDE [Suspect]
     Active Substance: RANITIDINE HYDROCHLORIDE
     Dosage: 75 MG, 1- 2 TIMES A DAY
     Route: 065
     Dates: start: 199001, end: 201701
  15. RANITIDINE HYDROCHLORIDE [Suspect]
     Active Substance: RANITIDINE HYDROCHLORIDE
     Dosage: 150 MG, QD
     Route: 065
     Dates: start: 199001, end: 201701
  16. RANITIDINE HYDROCHLORIDE [Suspect]
     Active Substance: RANITIDINE HYDROCHLORIDE
     Dosage: 150 MG, 1- 2 TIMES A DAY
     Route: 065
     Dates: start: 199001, end: 201701
  17. RANITIDINE [Suspect]
     Active Substance: RANITIDINE
     Indication: Crohn^s disease
     Dosage: 75 MG, QD
     Route: 065
     Dates: start: 199001, end: 201701
  18. RANITIDINE [Suspect]
     Active Substance: RANITIDINE
     Dosage: 75 MG, 1- 2 TIMES A DAY
     Route: 065
     Dates: start: 199001, end: 201701
  19. RANITIDINE [Suspect]
     Active Substance: RANITIDINE
     Dosage: 150 MG, QD
     Route: 065
     Dates: start: 199001, end: 201701
  20. RANITIDINE [Suspect]
     Active Substance: RANITIDINE
     Dosage: 150 MG, 1- 2 TIMES A DAY
     Route: 065
     Dates: start: 199001, end: 201701
  21. RANITIDINE [Suspect]
     Active Substance: RANITIDINE
     Indication: Crohn^s disease
     Dosage: 75 MG, QD
     Route: 065
     Dates: start: 199001, end: 201701
  22. RANITIDINE [Suspect]
     Active Substance: RANITIDINE
     Dosage: 75 MG, 1- 2 TIMES A DAY
     Route: 065
     Dates: start: 199001, end: 201701
  23. RANITIDINE [Suspect]
     Active Substance: RANITIDINE
     Dosage: 150 MG, QD
     Route: 065
     Dates: start: 199001, end: 201701
  24. RANITIDINE [Suspect]
     Active Substance: RANITIDINE
     Dosage: 150 MG, 1- 2 TIMES A DAY
     Route: 065
     Dates: start: 199001, end: 201701

REACTIONS (1)
  - Gastric cancer [Fatal]
